FAERS Safety Report 8546194-8 (Version None)
Quarter: 2012Q3

REPORT INFORMATION
  Report Type: 
  Country: None (occurrence: None)
  Receive Date: 20120727
  Receipt Date: 20120724
  Transmission Date: 20120928
  Serious: Yes (Hospitalization)
  Sender: FDA-Public Use
  Company Number: PHHY2012AT063589

PATIENT
  Age: 23 Year
  Sex: Female

DRUGS (5)
  1. BIPERIDEN HYDROCHLORIDE TAB [Concomitant]
     Dosage: 8 MG, QD
  2. RISPERIDONE [Suspect]
     Indication: SCHIZOPHRENIA, PARANOID TYPE
     Dosage: 6 MG/ DAY
     Dates: start: 20080101
  3. RISPERIDONE [Suspect]
     Dosage: 4 MG/ DAY
  4. PROCYCLIDINE HYDROCHLORIDE 2MG TAB [Concomitant]
     Dosage: 15 MG, QD
  5. LAMOTRIGINE [Concomitant]
     Dosage: 50 MG, BID

REACTIONS (7)
  - DYSKINESIA [None]
  - MOVEMENT DISORDER [None]
  - DYSTONIA [None]
  - TREMOR [None]
  - MUSCLE SPASMS [None]
  - PLEUROTHOTONUS [None]
  - PAIN [None]
